FAERS Safety Report 7677023-2 (Version None)
Quarter: 2011Q3

REPORT INFORMATION
  Report Type: 
  Country: None (occurrence: None)
  Receive Date: 20110811
  Receipt Date: 20110805
  Transmission Date: 20111222
  Serious: Yes (Other)
  Sender: FDA-Public Use
  Company Number: GB-GENZYME-CAMP-1001809

PATIENT
  Sex: Female

DRUGS (2)
  1. CAMPATH [Suspect]
     Indication: MULTIPLE SCLEROSIS
     Dosage: QDX5
     Route: 042
  2. METHYLPREDNISOLONE [Concomitant]
     Indication: PREMEDICATION
     Dosage: 1 G, QDX3 ON DAYS 1-3
     Route: 042

REACTIONS (1)
  - IDIOPATHIC THROMBOCYTOPENIC PURPURA [None]
